FAERS Safety Report 23923051 (Version 2)
Quarter: 2024Q2

REPORT INFORMATION
  Report Type: Spontaneous
  Country: US (occurrence: US)
  Receive Date: 20240531
  Receipt Date: 20240615
  Transmission Date: 20240716
  Serious: No
  Sender: FDA-Public Use
  Company Number: US-HETERO-HET2024US01575

PATIENT
  Sex: Female
  Weight: 155 kg

DRUGS (3)
  1. ATOVAQUONE [Suspect]
     Active Substance: ATOVAQUONE
     Indication: Prophylaxis
     Dosage: 2 TEA SPOONS ONCE A DAY WITH FOOD
     Route: 065
     Dates: start: 20240512
  2. AMLODIPINE [Concomitant]
     Active Substance: AMLODIPINE BESYLATE
     Indication: Hypertension
     Dosage: UNK
     Route: 065
  3. ACYCLOVIR [Concomitant]
     Active Substance: ACYCLOVIR
     Indication: Herpes zoster
     Dosage: UNK
     Route: 065

REACTIONS (2)
  - Product taste abnormal [Unknown]
  - Product odour abnormal [Unknown]
